FAERS Safety Report 13081416 (Version 1)
Quarter: 2016Q4

REPORT INFORMATION
  Report Type: Spontaneous
  Country: US (occurrence: US)
  Receive Date: 20161228
  Receipt Date: 20161228
  Transmission Date: 20170207
  Serious: Yes (Other)
  Sender: FDA-Public Use
  Company Number: US-PRAGMA PHARMACEUTICALS, LLC-2016PRG00893

PATIENT
  Age: 54 Year
  Sex: Female
  Weight: 94.79 kg

DRUGS (1)
  1. KEFLEX [Suspect]
     Active Substance: CEPHALEXIN
     Indication: PROPHYLAXIS
     Dosage: 1 CAPSULES, 2X/DAY
     Route: 048
     Dates: start: 20160921, end: 20160922

REACTIONS (9)
  - Scar [Not Recovered/Not Resolved]
  - Urticaria [Recovering/Resolving]
  - Choking [Recovered/Resolved]
  - Pruritus [Recovered/Resolved]
  - Skin discolouration [Not Recovered/Not Resolved]
  - Throat tightness [Recovered/Resolved]
  - Dysphagia [Recovered/Resolved]
  - Erythema [Not Recovered/Not Resolved]
  - Dry skin [Unknown]

NARRATIVE: CASE EVENT DATE: 2016
